FAERS Safety Report 18626558 (Version 1)
Quarter: 2020Q4

REPORT INFORMATION
  Report Type: Spontaneous
  Country: TN (occurrence: TN)
  Receive Date: 20201217
  Receipt Date: 20201217
  Transmission Date: 20210114
  Serious: Yes (Hospitalization)
  Sender: FDA-Public Use
  Company Number: TN-GRANULES-TN-2020GRALIT00098

PATIENT
  Age: 28 Year
  Sex: Male

DRUGS (9)
  1. INDOMETHACIN. [Concomitant]
     Active Substance: INDOMETHACIN
     Route: 065
  2. INDOMETHACIN. [Concomitant]
     Active Substance: INDOMETHACIN
  3. NAPROXEN SODIUM. [Suspect]
     Active Substance: NAPROXEN SODIUM
     Indication: ARTHRALGIA
  4. INFLIXIMAB [Concomitant]
     Active Substance: INFLIXIMAB
     Indication: IGA NEPHROPATHY
     Route: 042
  5. ETANERCEPT [Interacting]
     Active Substance: ETANERCEPT
     Indication: IGA NEPHROPATHY
     Route: 058
  6. DICLOFENAC [Concomitant]
     Active Substance: DICLOFENAC
     Route: 065
  7. NAPROXEN SODIUM. [Suspect]
     Active Substance: NAPROXEN SODIUM
     Indication: BACK PAIN
     Route: 065
  8. CAPTOPRIL. [Concomitant]
     Active Substance: CAPTOPRIL
     Indication: IGA NEPHROPATHY
     Route: 065
  9. DICLOFENAC [Concomitant]
     Active Substance: DICLOFENAC

REACTIONS (1)
  - Drug ineffective [Unknown]
